FAERS Safety Report 25576541 (Version 1)
Quarter: 2025Q3

REPORT INFORMATION
  Report Type: Spontaneous
  Country: US (occurrence: None)
  Receive Date: 20250717
  Receipt Date: 20250717
  Transmission Date: 20251021
  Serious: Yes (Hospitalization)
  Sender: FDA-CTU
  Company Number: None

PATIENT
  Sex: Female

DRUGS (3)
  1. APOMORPHINE [Suspect]
     Active Substance: APOMORPHINE
     Indication: Muscle spasms
     Route: 058
     Dates: start: 20250522
  2. APOMORPHINE [Suspect]
     Active Substance: APOMORPHINE
     Indication: Muscle spasms
  3. BOTOX [Concomitant]
     Active Substance: ONABOTULINUMTOXINA

REACTIONS (1)
  - Hospitalisation [None]
